FAERS Safety Report 24145188 (Version 1)
Quarter: 2024Q3

REPORT INFORMATION
  Report Type: Spontaneous
  Country: DK (occurrence: DK)
  Receive Date: 20240729
  Receipt Date: 20240729
  Transmission Date: 20241017
  Serious: Yes (Life-Threatening, Other)
  Sender: AUROBINDO
  Company Number: DK-PFIZER INC-2018090503

PATIENT
  Age: 79 Year
  Sex: Female
  Weight: 170 kg

DRUGS (6)
  1. RAMIPRIL [Interacting]
     Active Substance: RAMIPRIL
     Indication: Cardiac failure
     Dosage: 10 MILLIGRAM, ONCE A DAY
     Route: 048
     Dates: start: 20170331
  2. FUROSEMIDE [Interacting]
     Active Substance: FUROSEMIDE
     Indication: Diuretic therapy
     Dosage: 40 MILLIGRAM
     Route: 048
     Dates: start: 20160213
  3. AMIODARONE HYDROCHLORIDE [Interacting]
     Active Substance: AMIODARONE HYDROCHLORIDE
     Indication: Heart rate irregular
     Dosage: 200 MILLIGRAM, ONCE A DAY (STYRKE: 200 MG, QD)
     Route: 048
     Dates: start: 20170126
  4. XARELTO [Interacting]
     Active Substance: RIVAROXABAN
     Indication: Thrombosis prophylaxis
     Dosage: 15 MILLIGRAM
     Route: 048
     Dates: start: 20170307
  5. METOPROLOL SUCCINATE [Interacting]
     Active Substance: METOPROLOL SUCCINATE
     Indication: Cardiac disorder
     Dosage: 25 MILLIGRAM, ONCE A DAY (25 MG, QD)
     Route: 048
     Dates: start: 20161203
  6. LANSOPRAZOLE [Interacting]
     Active Substance: LANSOPRAZOLE
     Indication: Product used for unknown indication
     Dosage: 30 MILLIGRAM, ONCE A DAY (30 MG, QD)
     Route: 048
     Dates: start: 20170419

REACTIONS (10)
  - Drug-induced liver injury [Not Recovered/Not Resolved]
  - Headache [Not Recovered/Not Resolved]
  - Irritable bowel syndrome [Not Recovered/Not Resolved]
  - Sleep disorder [Not Recovered/Not Resolved]
  - Anaemia [Not Recovered/Not Resolved]
  - Dizziness [Not Recovered/Not Resolved]
  - Abdominal pain [Not Recovered/Not Resolved]
  - Drug interaction [Not Recovered/Not Resolved]
  - Pyrexia [Not Recovered/Not Resolved]
  - Diarrhoea [Not Recovered/Not Resolved]

NARRATIVE: CASE EVENT DATE: 20170419
